FAERS Safety Report 7971432-X (Version None)
Quarter: 2011Q4

REPORT INFORMATION
  Report Type: 
  Country: None (occurrence: None)
  Receive Date: 20111123
  Receipt Date: 20110923
  Transmission Date: 20120403
  Serious: Yes (Other)
  Sender: FDA-Public Use
  Company Number: 1000024226

PATIENT
  Age: 65 Year
  Sex: Male

DRUGS (1)
  1. DALIRESP [Suspect]
     Dosage: 500 MCG (500 MCG, 1 IN 1D), ORAL
     Route: 048
     Dates: start: 20110101, end: 20110101

REACTIONS (1)
  - SUICIDAL IDEATION [None]
